FAERS Safety Report 7150509-5 (Version None)
Quarter: 2010Q4

REPORT INFORMATION
  Report Type: 
  Country: None (occurrence: None)
  Receive Date: 20101210
  Receipt Date: 20101130
  Transmission Date: 20110411
  Serious: Yes (Life-Threatening, Hospitalization, Other)
  Sender: FDA-Public Use
  Company Number: JP-PFIZER INC-2010149873

PATIENT
  Age: 53 Year
  Sex: Female

DRUGS (9)
  1. LYRICA [Suspect]
     Dosage: 150 MG, DAILY
     Route: 048
     Dates: start: 20101112, end: 20101115
  2. PREDNISOLONE [Concomitant]
     Indication: GRAFT VERSUS HOST DISEASE
     Dosage: 20 MG, 1X/DAY
     Route: 048
  3. ALLELOCK [Concomitant]
     Indication: PRURIGO
     Dosage: 5 MG, 2X/DAY
     Route: 048
  4. GASTER [Concomitant]
     Indication: GASTRITIS
     Dosage: 10 MG, 1X/DAY
     Route: 048
  5. URSO 250 [Concomitant]
     Indication: LIVER DISORDER
     Dosage: 200 MG, 3X/DAY
     Route: 048
  6. MUCODYNE [Concomitant]
     Indication: BRONCHITIS CHRONIC
     Dosage: 500 MG, 3X/DAY
     Route: 048
  7. DIFLUCAN [Concomitant]
     Indication: PROPHYLAXIS
     Dosage: 100 MG, 1X/DAY
     Route: 048
  8. HICEE [Concomitant]
     Indication: DERMATITIS
     Dosage: 1 G, 3X/DAY
     Route: 048
  9. MYSLEE [Concomitant]
     Indication: INSOMNIA
     Dosage: 10 MG, 1X/DAY
     Route: 048

REACTIONS (6)
  - CARDIAC FAILURE [None]
  - DYSPHAGIA [None]
  - INFECTION [None]
  - MYOCARDITIS [None]
  - PULMONARY OEDEMA [None]
  - TACHYCARDIA [None]
